FAERS Safety Report 9902430 (Version 1)
Quarter: 2014Q1

REPORT INFORMATION
  Report Type: Spontaneous
  Country: FR (occurrence: FR)
  Receive Date: 20140217
  Receipt Date: 20140217
  Transmission Date: 20141002
  Serious: Yes (Other)
  Sender: FDA-Public Use
  Company Number: FR-ELI_LILLY_AND_COMPANY-FR201402004132

PATIENT
  Age: 56 Year
  Sex: Female

DRUGS (3)
  1. PEMETREXED [Suspect]
     Indication: LUNG ADENOCARCINOMA
     Dosage: 500 MG, OTHER
     Route: 065
     Dates: start: 2009
  2. DICLOFENAC [Concomitant]
     Indication: PAIN
     Route: 065
  3. FOLINIC ACID [Concomitant]
     Indication: SUPPLEMENTATION THERAPY
     Dosage: UNK
     Route: 065
     Dates: start: 2009

REACTIONS (5)
  - Kidney fibrosis [Unknown]
  - Renal tubular necrosis [Unknown]
  - Renal failure acute [Unknown]
  - Renal failure chronic [Not Recovered/Not Resolved]
  - Eyelid oedema [Unknown]
